FAERS Safety Report 20056730 (Version 8)
Quarter: 2023Q2

REPORT INFORMATION
  Report Type: Report from Study
  Country: US (occurrence: US)
  Receive Date: 20211111
  Receipt Date: 20230511
  Transmission Date: 20230721
  Serious: Yes (Hospitalization, Other)
  Sender: FDA-Public Use
  Company Number: US-BIOGEN-2021BI01065430

PATIENT
  Sex: Female
  Weight: 49.9 kg

DRUGS (41)
  1. TYSABRI [Suspect]
     Active Substance: NATALIZUMAB
     Indication: Multiple sclerosis
     Route: 050
     Dates: start: 2012
  2. TYSABRI [Suspect]
     Active Substance: NATALIZUMAB
     Dosage: INFUSED OVER 1 HOUR
     Route: 050
     Dates: start: 20120522
  3. TYSABRI [Suspect]
     Active Substance: NATALIZUMAB
     Route: 050
     Dates: start: 20121121, end: 20190509
  4. TYSABRI [Suspect]
     Active Substance: NATALIZUMAB
     Dosage: 300 MG/15 ML
     Route: 050
     Dates: start: 20121121, end: 20190314
  5. ACETAMINOPHEN [Concomitant]
     Active Substance: ACETAMINOPHEN
     Indication: Product used for unknown indication
     Dosage: Q4 PRN
     Route: 050
  6. ASCORBIC ACID [Concomitant]
     Active Substance: ASCORBIC ACID
     Indication: Product used for unknown indication
     Dosage: DAILY
     Route: 050
  7. LIORESAL [Concomitant]
     Active Substance: BACLOFEN
     Indication: Product used for unknown indication
     Route: 050
     Dates: start: 20151202, end: 20200610
  8. VITAMINS NOS [Concomitant]
     Active Substance: VITAMINS
     Indication: Product used for unknown indication
     Dosage: DAILY
     Route: 050
     Dates: end: 20190314
  9. CALCIUM CARBONATE\VITAMIN D [Concomitant]
     Active Substance: CALCIUM CARBONATE\VITAMIN D
     Indication: Product used for unknown indication
     Dosage: DAILY
     Route: 050
     Dates: start: 20130401, end: 20190314
  10. CALCIUM POLYCARBOPHIL [Concomitant]
     Active Substance: CALCIUM POLYCARBOPHIL
     Indication: Product used for unknown indication
     Dosage: ORAL
     Route: 050
     Dates: start: 20180821, end: 20200610
  11. CHOLECALCIFEROL [Concomitant]
     Active Substance: CHOLECALCIFEROL
     Indication: Product used for unknown indication
     Dosage: DAILY
     Route: 050
  12. DIPHENHYDRAMINE [Concomitant]
     Active Substance: DIPHENHYDRAMINE
     Indication: Hypersensitivity
     Dosage: AS NEEDED FOR ALLERGIC REACTION ?50 MG/ML
     Route: 050
     Dates: start: 20161115, end: 20200610
  13. DIPHENHYDRAMINE [Concomitant]
     Active Substance: DIPHENHYDRAMINE
     Route: 050
     Dates: end: 20190314
  14. FERROUS SULFATE [Concomitant]
     Active Substance: FERROUS SULFATE
     Indication: Product used for unknown indication
     Dosage: DAILY
     Route: 050
     Dates: start: 20121121, end: 20190314
  15. FERROUS SULFATE [Concomitant]
     Active Substance: FERROUS SULFATE
     Dosage: DAILY, FIRST DOSE ON 8 FEB 2019, FOR 60 DAYS
     Route: 050
     Dates: start: 20190208
  16. IBUPROFEN [Concomitant]
     Active Substance: IBUPROFEN
     Indication: Product used for unknown indication
     Dosage: AS NEEDED
     Route: 050
  17. TRINESSA [Concomitant]
     Active Substance: ETHINYL ESTRADIOL\NORGESTIMATE
     Indication: Product used for unknown indication
     Dosage: DAILY
     Route: 050
     Dates: start: 20150605
  18. vitamin D, Ergocalciferol [Concomitant]
     Indication: Product used for unknown indication
     Route: 050
     Dates: start: 20130104, end: 20190314
  19. vitamin D, Ergocalciferol [Concomitant]
     Dosage: FIRST DOSE (AFTER LAST MODIFICATION) ON 08 FEB 2019
     Route: 050
     Dates: start: 20190208
  20. MYRBETRIQ [Concomitant]
     Active Substance: MIRABEGRON
     Indication: Neurogenic bladder
     Dosage: DAILY
     Route: 050
     Dates: start: 20191204
  21. MYRBETRIQ [Concomitant]
     Active Substance: MIRABEGRON
     Route: 050
     Dates: end: 20190314
  22. ACETAMINOPHEN\CODEINE PHOSPHATE [Concomitant]
     Active Substance: ACETAMINOPHEN\CODEINE PHOSPHATE
     Indication: Product used for unknown indication
     Dosage: DAILY AS NEEDED
     Route: 050
     Dates: start: 20120309, end: 20190314
  23. Lioeresal (Baclofen) [Concomitant]
     Indication: Product used for unknown indication
     Dosage: AS NEEDED
     Route: 050
     Dates: start: 20081002, end: 20190314
  24. KLONOPIN [Concomitant]
     Active Substance: CLONAZEPAM
     Indication: Product used for unknown indication
     Route: 050
     Dates: start: 20141112, end: 20190314
  25. KLONOPIN [Concomitant]
     Active Substance: CLONAZEPAM
     Dosage: DAILY
     Route: 050
     Dates: start: 20180411, end: 20190422
  26. VIBRAMYCIN [Concomitant]
     Active Substance: DOXYCYCLINE
     Indication: Acne
     Route: 050
     Dates: start: 20181112, end: 20190314
  27. VIBRAMYCIN [Concomitant]
     Active Substance: DOXYCYCLINE
     Dosage: FIRST DOSE ON THURSDAY 07 FEB 2019, FOR 30 DAYS
     Route: 050
     Dates: start: 20190207
  28. ATIVAN [Concomitant]
     Active Substance: LORAZEPAM
     Indication: Product used for unknown indication
     Dosage: ONE TABLET BY MOUTH AS NEEDED
     Route: 050
     Dates: start: 20170509, end: 20190314
  29. ATIVAN [Concomitant]
     Active Substance: LORAZEPAM
     Dosage: TAKE 1 TABLET 30 MINS PRIOR TO MRI AND THEN JUST PRIOR TO MRI IF NEEDED
     Route: 050
     Dates: start: 20190129, end: 20190314
  30. ATIVAN [Concomitant]
     Active Substance: LORAZEPAM
     Route: 050
     Dates: start: 20190121, end: 20200610
  31. TRI-SPRINTEC [Concomitant]
     Active Substance: ETHINYL ESTRADIOL\NORGESTIMATE
     Indication: Product used for unknown indication
     Dosage: 0.18/0.215/0.25-35 MCG TABLETS?TAKE 1 TABLET BY MOUTH DAILY
     Route: 050
     Dates: start: 20190104, end: 20190314
  32. Lidocaine, Epinephrine [Concomitant]
     Indication: Anaesthesia
     Dosage: 1% LIDOCAINE WITH 1:100000 EPINEPHRINE
     Route: 050
  33. Ancef (cefazolin) [Concomitant]
     Indication: Product used for unknown indication
     Dosage: 2G IN DEXTROSE 3% 50 ML PREMIX ?ADMINISTER OVER 30 MINS
     Route: 050
     Dates: start: 20190207
  34. PEPCID [Concomitant]
     Active Substance: FAMOTIDINE
     Indication: Product used for unknown indication
     Dosage: FIRST DOSE ON 07 FEB 2019, FOR 60 DAYS
     Route: 050
     Dates: start: 20190207
  35. HEPARIN [Concomitant]
     Active Substance: HEPARIN SODIUM
     Indication: Product used for unknown indication
     Dosage: FIRST DOSE ON 07 FEB 2019, FOR 60 DAYS
     Route: 050
     Dates: start: 20190207
  36. HEPARIN [Concomitant]
     Active Substance: HEPARIN SODIUM
     Dosage: ABDOMEN, RIGHT ANTEROLATERAL THIGH, LEFT ANTEROLATERAL THIGH
     Route: 050
     Dates: start: 20190208
  37. Zofran-ODT (ondansetron) [Concomitant]
     Indication: Nausea
     Dosage: FOR 60 DAYS, FIRST CHOICE, PLACE ON TONGUE AND ALLOW TO DISSOLVE
     Route: 050
     Dates: start: 20190207
  38. DIPHENHYDRAMINE [Concomitant]
     Active Substance: DIPHENHYDRAMINE
     Indication: Product used for unknown indication
     Dosage: AS NEEDED
     Route: 050
     Dates: start: 20161115, end: 20190314
  39. ZOFRAN [Concomitant]
     Active Substance: ONDANSETRON HYDROCHLORIDE
     Indication: Nausea
     Dosage: FOR 60 DAYS, FIRST CHOICE IF UNABLE TO TAKE ORALLY
     Route: 050
     Dates: start: 20190207
  40. Narcan (Naloxone) [Concomitant]
     Indication: Product used for unknown indication
     Dosage: FOR 30 DAYS, PRN IF RESPIRATORY RATE IS LESS THAN 8/MIN OR PATIENT IS DIFFICULT TO AROUSE. MIX 9 ...
     Route: 050
     Dates: start: 20190207
  41. AMBIEN [Concomitant]
     Active Substance: ZOLPIDEM TARTRATE
     Indication: Sleep disorder
     Dosage: FOR 60 DAYS, DO NOT GIVE NIGHT OF SURGERY
     Route: 050
     Dates: start: 20190207

REACTIONS (6)
  - Lip and/or oral cavity cancer [Recovered/Resolved]
  - Blindness transient [Recovered/Resolved]
  - Vitamin D deficiency [Unknown]
  - Procedural pain [Unknown]
  - Dysphagia [Unknown]
  - Pelvic mass [Unknown]

NARRATIVE: CASE EVENT DATE: 20190101
